FAERS Safety Report 5357058-5 (Version None)
Quarter: 2007Q2

REPORT INFORMATION
  Report Type: 
  Country: None (occurrence: None)
  Receive Date: 20070614
  Receipt Date: 20070611
  Transmission Date: 20071010
  Serious: Yes (Death, Hospitalization)
  Sender: FDA-Public Use
  Company Number: FR-ASTRAZENECA-2007CG00892

PATIENT
  Age: 68 Year
  Sex: Male

DRUGS (18)
  1. TENORMIN [Suspect]
     Indication: ATRIAL FIBRILLATION
     Route: 042
     Dates: start: 20070409, end: 20070409
  2. CORDARONE [Suspect]
     Indication: ATRIAL FIBRILLATION
     Route: 042
     Dates: start: 20070409, end: 20070409
  3. CORDARONE [Suspect]
     Route: 042
     Dates: start: 20070414, end: 20070414
  4. CORDARONE [Suspect]
     Route: 042
     Dates: start: 20070415, end: 20070415
  5. CORDARONE [Suspect]
     Route: 042
     Dates: start: 20070416, end: 20070418
  6. DIPRIVAN [Concomitant]
     Indication: ANAESTHESIA
     Route: 042
     Dates: start: 20070409
  7. DIPRIVAN [Concomitant]
     Route: 042
     Dates: start: 20070415
  8. CRESTOR [Concomitant]
     Route: 048
  9. KARDEGIC [Concomitant]
     Dates: end: 20070201
  10. KARDEGIC [Concomitant]
     Dates: start: 20070401
  11. ISOPTIN [Concomitant]
  12. SUFENTA [Concomitant]
     Indication: ANAESTHESIA
     Dates: start: 20070409, end: 20070409
  13. SUFENTA [Concomitant]
     Dates: start: 20070415
  14. TRACRIUM [Concomitant]
     Indication: ANAESTHESIA
     Dates: start: 20070409, end: 20070409
  15. TRACRIUM [Concomitant]
     Dates: start: 20070415
  16. TAZOCILLINE [Concomitant]
     Dosage: PIPERACILLIN 4 G + TAZOBACTAM 500 MG DAILY
     Dates: start: 20070409, end: 20070410
  17. TAZOCILLINE [Concomitant]
     Dosage: PIPERACILLIN 4 G + TAZOBACTAM 500 MG DAILY
     Dates: start: 20070413, end: 20070416
  18. AMIKLIN [Concomitant]
     Dates: start: 20070409, end: 20070409

REACTIONS (1)
  - INTERSTITIAL LUNG DISEASE [None]
